FAERS Safety Report 8906470 (Version 1)
Quarter: 2012Q4

REPORT INFORMATION
  Report Type: Spontaneous
  Country: US (occurrence: None)
  Receive Date: 20121113
  Receipt Date: 20121113
  Transmission Date: 20130627
  Serious: Yes (Other)
  Sender: FDA-Public Use
  Company Number: None

PATIENT
  Sex: Female

DRUGS (2)
  1. ESCITALOPRAM [Suspect]
     Dosage: 20mg 1QD oral
     Route: 048
     Dates: start: 201207
  2. ESCITALOPRAM [Suspect]
     Dosage: 20mg 1QD oral
     Route: 048
     Dates: start: 20121027

REACTIONS (9)
  - Impaired work ability [None]
  - Drug intolerance [None]
  - Activities of daily living impaired [None]
  - Nausea [None]
  - Vomiting [None]
  - Dizziness [None]
  - Depression [None]
  - Panic attack [None]
  - Headache [None]
